FAERS Safety Report 17454135 (Version 1)
Quarter: 2020Q1

REPORT INFORMATION
  Report Type: Spontaneous
  Country: US (occurrence: US)
  Receive Date: 20200224
  Receipt Date: 20200224
  Transmission Date: 20200409
  Serious: No
  Sender: FDA-Public Use
  Company Number: US-CIPLA LTD.-2019US08122

PATIENT

DRUGS (7)
  1. TYLENOL [Concomitant]
     Active Substance: ACETAMINOPHEN
     Indication: GROIN PAIN
  2. SOLIQUA 100/33 [Concomitant]
     Active Substance: INSULIN GLARGINE\LIXISENATIDE
     Indication: BLOOD GLUCOSE ABNORMAL
     Dosage: 23 UNIT, QD (ONCE A DAY)
     Route: 058
     Dates: start: 201910
  3. TYLENOL [Concomitant]
     Active Substance: ACETAMINOPHEN
     Indication: ARTHRALGIA
     Dosage: 500 MILLIGRAM, PRN (MORE THAN 2 A DAY (WHEN NEEDED))
     Route: 065
  4. ZESTRIL [Concomitant]
     Active Substance: LISINOPRIL
     Indication: HYPERTENSION
     Dosage: 10 MILLIGRAM, QD (ONCE DALIY)
     Route: 065
     Dates: start: 2000
  5. DICLOFENAC [Suspect]
     Active Substance: DICLOFENAC
     Indication: ARTHRITIS
     Dosage: 4 GRAM, QID (EVERY 6 HOURS)
     Route: 061
  6. OMEPRAZOLE. [Concomitant]
     Active Substance: OMEPRAZOLE
     Indication: BARRETT^S OESOPHAGUS
     Dosage: UNK UNK, QD (ONCE DAILY)
     Route: 065
  7. LIPITOR [Concomitant]
     Active Substance: ATORVASTATIN CALCIUM
     Indication: PRODUCT USED FOR UNKNOWN INDICATION
     Dosage: 10 MILLIGRAM, QD (ONCE DAILY)
     Route: 065
     Dates: start: 2000

REACTIONS (2)
  - Off label use [Unknown]
  - Product use in unapproved indication [Unknown]
